FAERS Safety Report 19347747 (Version 4)
Quarter: 2021Q4

REPORT INFORMATION
  Report Type: Spontaneous
  Country: US (occurrence: US)
  Receive Date: 20210531
  Receipt Date: 20211208
  Transmission Date: 20220303
  Serious: No
  Sender: FDA-Public Use
  Company Number: US-SA-SAC20210527000860

PATIENT
  Age: 22 Year
  Sex: Female

DRUGS (1)
  1. DUPIXENT [Suspect]
     Active Substance: DUPILUMAB
     Indication: Dermatitis atopic
     Dosage: 300 MG, QOW
     Route: 058
     Dates: start: 20210409

REACTIONS (6)
  - Alopecia [Not Recovered/Not Resolved]
  - Erythema [Unknown]
  - Eyelid disorder [Unknown]
  - Flushing [Unknown]
  - Mental status changes [Unknown]
  - Malaise [Unknown]

NARRATIVE: CASE EVENT DATE: 20210101
